FAERS Safety Report 20261029 (Version 3)
Quarter: 2022Q1

REPORT INFORMATION
  Report Type: Spontaneous
  Country: JP (occurrence: JP)
  Receive Date: 20211230
  Receipt Date: 20220126
  Transmission Date: 20220423
  Serious: Yes (Life-Threatening, Hospitalization, Other)
  Sender: FDA-Public Use
  Company Number: JP-TAKEDA-2021TJP138939

PATIENT
  Age: 75 Year
  Sex: Male

DRUGS (4)
  1. NESINA [Suspect]
     Active Substance: ALOGLIPTIN BENZOATE
     Indication: Type 2 diabetes mellitus
     Dosage: 25 MILLIGRAM, QD
     Route: 048
     Dates: end: 20211227
  2. ROSUVASTATIN [Concomitant]
     Active Substance: ROSUVASTATIN
     Indication: Dyslipidaemia
     Dosage: 2.5 MILLIGRAM, QD
     Route: 048
  3. MAGNESIUM OXIDE [Concomitant]
     Active Substance: MAGNESIUM OXIDE
     Indication: Constipation
     Dosage: 660 MILLIGRAM, TID
     Route: 048
     Dates: start: 201905
  4. HERBALS [Concomitant]
     Active Substance: HERBALS
     Indication: Constipation
     Dosage: UNK
     Route: 048
     Dates: start: 201905

REACTIONS (1)
  - Intestinal obstruction [Recovered/Resolved]
